FAERS Safety Report 14708907 (Version 1)
Quarter: 2018Q2

REPORT INFORMATION
  Report Type: Report from Study
  Country: JP (occurrence: JP)
  Receive Date: 20180403
  Receipt Date: 20180403
  Transmission Date: 20180711
  Serious: Yes (Hospitalization)
  Sender: FDA-Public Use
  Company Number: JP-ACTELION-A-CH2017-157897

PATIENT
  Age: 71 Year
  Sex: Female

DRUGS (9)
  1. OPSUMIT [Suspect]
     Active Substance: MACITENTAN
     Dosage: 10 MG, QD
     Route: 048
     Dates: start: 20151218
  2. BAYASPIRIN [Concomitant]
     Active Substance: ASPIRIN
  3. TRICHLORMETHIAZIDE [Concomitant]
     Active Substance: TRICHLORMETHIAZIDE
  4. ADCIRCA [Concomitant]
     Active Substance: TADALAFIL
  5. LUPRAC [Concomitant]
     Active Substance: TORSEMIDE
  6. OPSUMIT [Suspect]
     Active Substance: MACITENTAN
     Indication: PULMONARY ARTERIAL HYPERTENSION
     Dosage: 5 MG, QD
     Route: 048
     Dates: start: 20150928, end: 20151203
  7. OPSUMIT [Suspect]
     Active Substance: MACITENTAN
     Dosage: 10 MG, QD
     Route: 048
     Dates: start: 20150831, end: 20150927
  8. CARELOAD [Concomitant]
     Active Substance: BERAPROST SODIUM
  9. ELIQUIS [Concomitant]
     Active Substance: APIXABAN

REACTIONS (7)
  - Dyspnoea exertional [Recovered/Resolved]
  - Atrial tachycardia [Unknown]
  - Blood pressure decreased [Unknown]
  - Cardiac ablation [Unknown]
  - Malaise [Recovered/Resolved]
  - Abdominal distension [Recovered/Resolved]
  - Cardiac failure [Unknown]

NARRATIVE: CASE EVENT DATE: 20150928
